FAERS Safety Report 13347470 (Version 11)
Quarter: 2019Q3

REPORT INFORMATION
  Report Type: Report from Study
  Country: US (occurrence: US)
  Receive Date: 20170317
  Receipt Date: 20190712
  Transmission Date: 20191004
  Serious: Yes (Other)
  Sender: FDA-Public Use
  Company Number: US-JNJFOC-20170214101

PATIENT
  Age: 79 Year
  Sex: Female

DRUGS (21)
  1. IMBRUVICA [Suspect]
     Active Substance: IBRUTINIB
     Indication: MANTLE CELL LYMPHOMA
     Dosage: 280 MG, QD
     Route: 048
     Dates: start: 20170205, end: 20170220
  2. IMBRUVICA [Suspect]
     Active Substance: IBRUTINIB
     Route: 048
     Dates: start: 20170407
  3. IMBRUVICA [Suspect]
     Active Substance: IBRUTINIB
     Dosage: 70 MG, QD
     Route: 048
  4. AMIODARONE HCL [Concomitant]
     Active Substance: AMIODARONE HYDROCHLORIDE
  5. FLUTICASONE PROPIONATE. [Concomitant]
     Active Substance: FLUTICASONE PROPIONATE
  6. FUROSEMIDE. [Concomitant]
     Active Substance: FUROSEMIDE
  7. NIFEDIPINE. [Concomitant]
     Active Substance: NIFEDIPINE
  8. BABY ASPIRIN [Suspect]
     Active Substance: ASPIRIN
     Indication: PRODUCT USED FOR UNKNOWN INDICATION
     Route: 065
  9. DIPHENOXYLATE/ATROPINE [Concomitant]
     Active Substance: ATROPINE\DIPHENOXYLATE
  10. IMBRUVICA [Suspect]
     Active Substance: IBRUTINIB
     Route: 048
     Dates: start: 20170301, end: 2017
  11. IMBRUVICA [Suspect]
     Active Substance: IBRUTINIB
     Route: 048
     Dates: start: 20170205, end: 20180611
  12. CYANOCOBALAMIN. [Concomitant]
     Active Substance: CYANOCOBALAMIN
  13. FERROUS SULFATE. [Concomitant]
     Active Substance: FERROUS SULFATE
  14. OMEPRAZOLE. [Concomitant]
     Active Substance: OMEPRAZOLE
  15. ACETYLSALICYLIC ACID [Concomitant]
     Active Substance: ASPIRIN
  16. METOPROLOL SUCCINATE. [Concomitant]
     Active Substance: METOPROLOL SUCCINATE
  17. IMBRUVICA [Suspect]
     Active Substance: IBRUTINIB
     Dosage: 70 MG, QOD
     Route: 048
     Dates: start: 20190411
  18. ELIQUIS [Suspect]
     Active Substance: APIXABAN
     Indication: PRODUCT USED FOR UNKNOWN INDICATION
     Route: 065
  19. IMBRUVICA [Suspect]
     Active Substance: IBRUTINIB
     Route: 048
     Dates: start: 20170606
  20. IMBRUVICA [Suspect]
     Active Substance: IBRUTINIB
     Route: 048
     Dates: start: 20180612
  21. ONDANSETRON HCL [Concomitant]
     Active Substance: ONDANSETRON HYDROCHLORIDE

REACTIONS (15)
  - Haemoglobin decreased [Recovering/Resolving]
  - Increased tendency to bruise [Not Recovered/Not Resolved]
  - Hypersensitivity [Unknown]
  - Pneumonia [Unknown]
  - Platelet count decreased [Not Recovered/Not Resolved]
  - Off label use [Unknown]
  - Lip ulceration [Recovered/Resolved]
  - Pruritus [Unknown]
  - Cellulitis [Unknown]
  - Asthenia [Not Recovered/Not Resolved]
  - Dizziness [Not Recovered/Not Resolved]
  - Swelling [Not Recovered/Not Resolved]
  - Incorrect dose administered [Unknown]
  - Haemorrhage subcutaneous [Unknown]
  - Fatigue [Not Recovered/Not Resolved]

NARRATIVE: CASE EVENT DATE: 20170202
